FAERS Safety Report 8019876-4 (Version None)
Quarter: 2012Q1

REPORT INFORMATION
  Report Type: 
  Country: None (occurrence: None)
  Receive Date: 20120103
  Receipt Date: 20111229
  Transmission Date: 20120608
  Serious: No
  Sender: FDA-Public Use
  Company Number: US-TEVA-315612USA

PATIENT
  Sex: Female
  Weight: 47.67 kg

DRUGS (3)
  1. LOESTRIN 24 FE [Concomitant]
     Indication: ANXIETY
  2. PLAN B ONE-STEP [Suspect]
     Indication: POST COITAL CONTRACEPTION
     Dosage: 1.5 MILLIGRAM;
     Route: 048
     Dates: start: 20111228, end: 20111228
  3. LOESTRIN 24 FE [Concomitant]
     Indication: CONTRACEPTION

REACTIONS (2)
  - ABDOMINAL DISTENSION [None]
  - PELVIC PAIN [None]
